FAERS Safety Report 7717401-6 (Version None)
Quarter: 2011Q3

REPORT INFORMATION
  Report Type: 
  Country: None (occurrence: None)
  Receive Date: 20110830
  Receipt Date: 20110818
  Transmission Date: 20111222
  Serious: No
  Sender: FDA-Public Use
  Company Number: US-JNJFOC-20110808632

PATIENT
  Age: 18 Year
  Sex: Female

DRUGS (2)
  1. INVEGA [Suspect]
     Indication: SCHIZOPHRENIA
     Route: 048
     Dates: start: 20110725, end: 20110101
  2. INVEGA [Suspect]
     Route: 048
     Dates: start: 20110720, end: 20110724

REACTIONS (2)
  - BODY TEMPERATURE INCREASED [None]
  - AMENORRHOEA [None]
